FAERS Safety Report 6466780-9 (Version None)
Quarter: 2009Q4

REPORT INFORMATION
  Report Type: 
  Country: None (occurrence: None)
  Receive Date: 20091127
  Receipt Date: 20091118
  Transmission Date: 20100525
  Serious: Yes (Death, Hospitalization)
  Sender: FDA-Public Use
  Company Number: 2009-04613

PATIENT
  Age: 83 Year
  Sex: Male
  Weight: 86.6 kg

DRUGS (13)
  1. VELCADE [Suspect]
     Indication: MULTIPLE MYELOMA
     Dosage: 1.3 MG/M2, INTRAVENOUS
     Route: 042
     Dates: start: 20091027, end: 20091027
  2. DEXAMETHASONE TAB [Suspect]
     Indication: MULTIPLE MYELOMA
     Dosage: 40 MG,
     Dates: start: 20091027
  3. COREG [Concomitant]
  4. PLAVIX [Concomitant]
  5. ASPIRIN [Concomitant]
  6. FLOMAX [Concomitant]
  7. DIGOXIN [Concomitant]
  8. AVODART [Concomitant]
  9. ISOSORBIDE (ISOSORBIDE) [Concomitant]
  10. METOLAZONE [Concomitant]
  11. LASIX [Concomitant]
  12. HYDRALAZINE HYDROCHLORIDE (HYDRALAZINE HYDROCHLORIDE) [Concomitant]
  13. POTASSIUM CHLORIDE [Concomitant]

REACTIONS (7)
  - BLOOD PRESSURE DECREASED [None]
  - COMA [None]
  - HAEMATEMESIS [None]
  - HAEMOGLOBIN DECREASED [None]
  - PLATELET COUNT DECREASED [None]
  - PNEUMONIA [None]
  - RESPIRATORY TRACT INFECTION VIRAL [None]
